FAERS Safety Report 8395931-4 (Version None)
Quarter: 2012Q2

REPORT INFORMATION
  Report Type: 
  Country: None (occurrence: None)
  Receive Date: 20120530
  Receipt Date: 20120524
  Transmission Date: 20120825
  Serious: Yes (Hospitalization, Other)
  Sender: FDA-Public Use
  Company Number: PHHY2012BR036161

PATIENT
  Sex: Male

DRUGS (3)
  1. ONBREZ [Suspect]
     Indication: CHRONIC OBSTRUCTIVE PULMONARY DISEASE
     Dosage: 150 UG, UNK
  2. FORMOTEROL FUMARATE [Suspect]
     Indication: LUNG DISORDER
     Dosage: 1 DF, UNK
  3. BAMIFIX [Concomitant]
     Indication: LUNG DISORDER

REACTIONS (3)
  - DYSPNOEA [None]
  - INAPPROPRIATE SCHEDULE OF DRUG ADMINISTRATION [None]
  - PNEUMONIA [None]
